FAERS Safety Report 25270330 (Version 8)
Quarter: 2025Q4

REPORT INFORMATION
  Report Type: Report from Study
  Country: US (occurrence: US)
  Receive Date: 20250505
  Receipt Date: 20251203
  Transmission Date: 20260117
  Serious: Yes (Other)
  Sender: ALNYLAM PHARMACEUTICALS
  Company Number: US-ALNYLAM PHARMACEUTICALS, INC.-ALN-2025-002913

PATIENT
  Age: 51 Year

DRUGS (1)
  1. GIVLAARI [Suspect]
     Active Substance: GIVOSIRAN SODIUM
     Indication: Porphyria acute
     Dosage: 189 MILLIGRAM, MONTHLY

REACTIONS (8)
  - Hepatic cirrhosis [Not Recovered/Not Resolved]
  - Porphyria acute [Unknown]
  - Therapy interrupted [Unknown]
  - Intentional dose omission [Unknown]
  - Intentional dose omission [Unknown]
  - Product dose omission issue [Unknown]
  - Product dose omission issue [Unknown]
  - Therapy interrupted [Unknown]
